FAERS Safety Report 4928536-5 (Version None)
Quarter: 2006Q1

REPORT INFORMATION
  Report Type: 
  Country: None (occurrence: None)
  Receive Date: 20060223
  Receipt Date: 20060213
  Transmission Date: 20060701
  Serious: Yes (Other)
  Sender: FDA-Public Use
  Company Number: 2006021036

PATIENT
  Age: 45 Year
  Sex: Female
  Weight: 102.0593 kg

DRUGS (1)
  1. BENGAY PAIN RELIEVING PATCH (MENTHOL) [Suspect]
     Indication: PAIN IN EXTREMITY
     Dosage: 2 PATCHES, TOPICAL
     Route: 061
     Dates: start: 20060213, end: 20060213

REACTIONS (4)
  - HALLUCINATION [None]
  - HYPERHIDROSIS [None]
  - PYREXIA [None]
  - SELF-MEDICATION [None]
